FAERS Safety Report 4294690-4 (Version None)
Quarter: 2004Q1

REPORT INFORMATION
  Report Type: 
  Country: None (occurrence: None)
  Receive Date: 20040213
  Receipt Date: 20040207
  Transmission Date: 20041129
  Serious: Yes (Other)
  Sender: FDA-Public Use
  Company Number: US-BRISTOL-MYERS SQUIBB COMPANY-12501730

PATIENT

DRUGS (1)
  1. SUSTIVA [Suspect]
     Indication: HIV INFECTION
     Dates: start: 20031001

REACTIONS (4)
  - ABNORMAL DREAMS [None]
  - DIZZINESS [None]
  - FALL [None]
  - WRIST FRACTURE [None]
